FAERS Safety Report 23300408 (Version 2)
Quarter: 2024Q1

REPORT INFORMATION
  Report Type: Spontaneous
  Country: DE (occurrence: DE)
  Receive Date: 20231215
  Receipt Date: 20240202
  Transmission Date: 20240409
  Serious: Yes (Other)
  Sender: FDA-Public Use
  Company Number: DE-BoehringerIngelheim-2023-BI-278010

PATIENT
  Age: 59 Year
  Sex: Female

DRUGS (1)
  1. AFATINIB [Suspect]
     Active Substance: AFATINIB
     Indication: Lung adenocarcinoma
     Route: 048
     Dates: start: 202108, end: 202212

REACTIONS (2)
  - Malignant neoplasm progression [Unknown]
  - EGFR gene mutation [Unknown]

NARRATIVE: CASE EVENT DATE: 20220601
